FAERS Safety Report 18459204 (Version 1)
Quarter: 2020Q4

REPORT INFORMATION
  Report Type: Spontaneous
  Country: US (occurrence: US)
  Receive Date: 20201103
  Receipt Date: 20201103
  Transmission Date: 20210114
  Serious: No
  Sender: FDA-Public Use
  Company Number: US-LEXICON PHARMACEUTICALS, INC-20-1606-00760

PATIENT
  Age: 62 Year
  Sex: Female

DRUGS (5)
  1. ENSURE [Concomitant]
     Active Substance: AMINO ACIDS\DEXTROSE\ELECTROLYTES NOS\SOYBEAN OIL\VITAMINS
  2. XERMELO [Suspect]
     Active Substance: TELOTRISTAT ETHYL
     Indication: CARCINOID SYNDROME
     Dates: start: 20200905
  3. OCTREOTIDE. [Concomitant]
     Active Substance: OCTREOTIDE
  4. LANREOTIDE [Concomitant]
     Active Substance: LANREOTIDE
  5. BOOST [Concomitant]
     Active Substance: DIETARY SUPPLEMENT

REACTIONS (1)
  - Feeling abnormal [Recovering/Resolving]

NARRATIVE: CASE EVENT DATE: 202010
